FAERS Safety Report 9014482 (Version 3)
Quarter: 2013Q4

REPORT INFORMATION
  Report Type: Spontaneous
  Country: JP (occurrence: JP)
  Receive Date: 20130115
  Receipt Date: 20131030
  Transmission Date: 20140711
  Serious: Yes (Death)
  Sender: FDA-Public Use
  Company Number: JP-GLAXOSMITHKLINE-B0858102A

PATIENT
  Age: 68 Year
  Sex: Female

DRUGS (12)
  1. FLOLAN [Suspect]
     Indication: PULMONARY ARTERIAL HYPERTENSION
     Route: 042
     Dates: start: 20091109, end: 20121004
  2. VOLIBRIS [Suspect]
     Indication: PULMONARY ARTERIAL HYPERTENSION
     Dosage: 10MG PER DAY
     Route: 048
     Dates: start: 20101002, end: 20121004
  3. ALDACTONE A [Concomitant]
     Dosage: 25MG PER DAY
     Route: 048
     Dates: start: 20100116, end: 20121004
  4. REVATIO [Concomitant]
     Indication: PULMONARY ARTERIAL HYPERTENSION
     Dosage: 60MG THREE TIMES PER DAY
     Route: 048
     Dates: start: 20080419, end: 20121004
  5. FUROSEMIDE [Concomitant]
     Dosage: 40MG TWICE PER DAY
     Route: 048
     Dates: end: 20121004
  6. LIVALO [Concomitant]
     Dosage: 2MG PER DAY
     Route: 048
     Dates: end: 20121004
  7. METILDIGOXIN [Concomitant]
     Dosage: .1MG PER DAY
     Route: 048
     Dates: end: 20121004
  8. PANALDINE [Concomitant]
     Dosage: 200MG TWICE PER DAY
     Route: 048
     Dates: end: 20121004
  9. BIOFERMIN [Concomitant]
     Dosage: 3G THREE TIMES PER DAY
     Route: 048
     Dates: start: 200911, end: 20121004
  10. ZYLORIC [Concomitant]
     Dosage: 100MG PER DAY
     Route: 048
     Dates: start: 20100107, end: 20121004
  11. PARIET [Concomitant]
     Dosage: 10MG PER DAY
     Route: 048
     Dates: start: 20100107, end: 20121004
  12. FERROMIA [Concomitant]
     Dosage: 50MG PER DAY
     Route: 048
     Dates: start: 20100103, end: 20121004

REACTIONS (3)
  - Otitis media [Recovering/Resolving]
  - Sudden death [Fatal]
  - Deafness neurosensory [Unknown]
